FAERS Safety Report 13158507 (Version 2)
Quarter: 2017Q1

REPORT INFORMATION
  Report Type: Spontaneous
  Country: PL (occurrence: PL)
  Receive Date: 20170127
  Receipt Date: 20170301
  Transmission Date: 20170428
  Serious: Yes (Hospitalization, Disabling)
  Sender: FDA-Public Use
  Company Number: PL-TOLMAR, INC.-2017PL000631

PATIENT
  Age: 61 Year
  Sex: Male
  Weight: 80 kg

DRUGS (2)
  1. POLOCARD [Concomitant]
     Active Substance: ASPIRIN
  2. ELIGARD [Suspect]
     Active Substance: LEUPROLIDE ACETATE
     Indication: PROSTATE CANCER
     Dosage: 45 MG, EVERY SIX MONTHS
     Route: 058
     Dates: start: 201509

REACTIONS (6)
  - Hemiparesis [Recovering/Resolving]
  - Thrombotic cerebral infarction [Unknown]
  - Ischaemic stroke [Recovering/Resolving]
  - Speech disorder [Unknown]
  - Hemiplegia [Unknown]
  - Amnesia [Unknown]

NARRATIVE: CASE EVENT DATE: 20160714
